FAERS Safety Report 14778445 (Version 2)
Quarter: 2018Q2

REPORT INFORMATION
  Report Type: Other
  Country: DE (occurrence: DE)
  Receive Date: 20180419
  Receipt Date: 20180511
  Transmission Date: 20180711
  Serious: Yes (Other)
  Sender: FDA-Public Use
  Company Number: DE-LUPIN PHARMACEUTICALS INC.-2018-03000

PATIENT
  Age: 1 Day
  Sex: Female
  Weight: 3.6 kg

DRUGS (2)
  1. PARACETAMOL [Concomitant]
     Active Substance: ACETAMINOPHEN
     Indication: HEADACHE
     Dosage: UNK (FOUR TIMES DURING PREGNANCY)
     Route: 064
  2. LAMOTRIGINE. [Suspect]
     Active Substance: LAMOTRIGINE
     Indication: PARTIAL SEIZURES
     Dosage: UNK (1300 [MG/D ]/ INITIAL 600 MG/D, DOSAGE INCREASED FROM WK 10 TO 450-400-450 MG DAILY)
     Route: 064
     Dates: start: 20170110, end: 20171018

REACTIONS (3)
  - Selective eating disorder [Recovered/Resolved]
  - Somnolence [Recovering/Resolving]
  - Foetal exposure during pregnancy [Unknown]

NARRATIVE: CASE EVENT DATE: 20171018
